FAERS Safety Report 17076082 (Version 1)
Quarter: 2019Q4

REPORT INFORMATION
  Report Type: Spontaneous
  Country: FR (occurrence: FR)
  Receive Date: 20191126
  Receipt Date: 20191126
  Transmission Date: 20200122
  Serious: Yes (Hospitalization)
  Sender: FDA-Public Use
  Company Number: FR-GRUNENTHAL-2018-15719

PATIENT
  Age: 58 Year
  Sex: Female

DRUGS (1)
  1. QUTENZA [Suspect]
     Active Substance: CAPSAICIN
     Indication: NEURALGIA
     Dosage: 1 DF, UNK
     Route: 003
     Dates: start: 20180110, end: 20180110

REACTIONS (3)
  - Application site burn [Recovered/Resolved]
  - Product formulation issue [Unknown]
  - Inappropriate schedule of product administration [Unknown]

NARRATIVE: CASE EVENT DATE: 20180110
